FAERS Safety Report 4302125-8 (Version None)
Quarter: 2004Q1

REPORT INFORMATION
  Report Type: 
  Country: None (occurrence: None)
  Receive Date: 20040211
  Receipt Date: 20040130
  Transmission Date: 20041129
  Serious: Yes (Hospitalization)
  Sender: FDA-Public Use
  Company Number: 2004-112456-NL

PATIENT
  Age: 74 Year
  Sex: Female

DRUGS (8)
  1. MIRTAZAPINE [Suspect]
     Indication: DEPRESSION
     Dosage: 15 MG ORAL
     Route: 048
     Dates: start: 20040109, end: 20040109
  2. BROMAZEPAM [Concomitant]
  3. PARACETAMOL [Concomitant]
  4. ESOMEPRAZOLE [Concomitant]
  5. SPIRONOLACTONE [Concomitant]
  6. ATENOLOL [Concomitant]
  7. CEFUROXIME [Concomitant]
  8. HEPARIN-FRACTION, SODIUM SALT [Concomitant]

REACTIONS (6)
  - DISORIENTATION [None]
  - HYPERKINESIA [None]
  - MENTAL IMPAIRMENT [None]
  - MUSCLE RIGIDITY [None]
  - PYREXIA [None]
  - SEROTONIN SYNDROME [None]
